FAERS Safety Report 10612040 (Version 1)
Quarter: 2014Q4

REPORT INFORMATION
  Report Type: Report from Study
  Country: NL (occurrence: NL)
  Receive Date: 20141126
  Receipt Date: 20141126
  Transmission Date: 20150529
  Serious: Yes (Hospitalization, Other)
  Sender: FDA-Public Use
  Company Number: NL-AMGEN-NLDSL2013094619

PATIENT
  Age: 76 Year
  Sex: Male

DRUGS (1)
  1. XGEVA [Suspect]
     Active Substance: DENOSUMAB
     Indication: PRODUCT USED FOR UNKNOWN INDICATION
     Dosage: 1.7 ML (70MG/ML), Q4WK
     Route: 065
     Dates: start: 20130123

REACTIONS (4)
  - Sense of oppression [Unknown]
  - Terminal state [Unknown]
  - Hospitalisation [Unknown]
  - Pallor [Unknown]
